FAERS Safety Report 4939659-9 (Version None)
Quarter: 2006Q1

REPORT INFORMATION
  Report Type: 
  Country: None (occurrence: None)
  Receive Date: 20060310
  Receipt Date: 20051123
  Transmission Date: 20060701
  Serious: Yes (Death, Hospitalization, Disabling, Other)
  Sender: FDA-Public Use
  Company Number: US-MERCK-0511USA04333

PATIENT
  Age: 46 Year
  Sex: Male
  Weight: 91 kg

DRUGS (31)
  1. VIOXX [Suspect]
     Indication: ARTHRALGIA
     Route: 048
     Dates: start: 19990101, end: 20030101
  2. CLONAZEPAM [Concomitant]
     Route: 065
  3. RESTORIL [Concomitant]
     Route: 065
  4. SEROQUEL [Concomitant]
     Route: 065
  5. EFFEXOR [Concomitant]
     Route: 065
  6. LEVBID [Concomitant]
     Route: 065
  7. XANAX [Concomitant]
     Route: 065
  8. MAALOX FAST BLOCKER [Concomitant]
     Route: 065
  9. DILANTIN [Concomitant]
     Route: 065
  10. NEXIUM [Concomitant]
     Route: 065
  11. OXYCONTIN [Concomitant]
     Route: 065
  12. IBUPROFEN [Concomitant]
     Route: 065
  13. SUSTIVA [Concomitant]
     Route: 065
  14. ZIAGEN [Concomitant]
     Route: 065
  15. AGENERASE [Concomitant]
     Route: 065
  16. NORVIR [Concomitant]
     Route: 065
  17. ZOLOFT [Concomitant]
     Route: 065
  18. PRILOSEC [Concomitant]
     Route: 065
  19. LIPITOR [Concomitant]
     Route: 065
  20. GEMFIBROZIL [Concomitant]
     Route: 065
  21. CLONAZEPAM [Concomitant]
     Route: 065
  22. HYDROCODONE BITARTRATE [Concomitant]
     Route: 065
  23. LONOX [Concomitant]
     Route: 065
  24. IMIPRAMINE HYDROCHLORIDE [Concomitant]
     Route: 065
  25. NEURONTIN [Concomitant]
     Route: 065
  26. LORAZEPAM [Concomitant]
     Route: 065
  27. VIRAMUNE [Concomitant]
     Route: 065
  28. VIREAD [Concomitant]
     Route: 065
  29. PRAVACHOL [Concomitant]
     Route: 065
  30. LITHOBID [Concomitant]
     Route: 065
  31. CELEBREX [Concomitant]
     Route: 065

REACTIONS (18)
  - ANGINA PECTORIS [None]
  - ARTHROPATHY [None]
  - CARDIAC DISORDER [None]
  - CARPAL TUNNEL SYNDROME [None]
  - CHEST DISCOMFORT [None]
  - CHEST PAIN [None]
  - CONGESTIVE CARDIOMYOPATHY [None]
  - CORONARY ARTERY OCCLUSION [None]
  - DEATH [None]
  - EPISTAXIS [None]
  - HEART RATE IRREGULAR [None]
  - INTERVERTEBRAL DISC DEGENERATION [None]
  - MITRAL VALVE INCOMPETENCE [None]
  - NASOPHARYNGITIS [None]
  - OBSTRUCTION [None]
  - PHARYNGOLARYNGEAL PAIN [None]
  - PULMONARY HYPERTENSION [None]
  - VENTRICULAR HYPERTROPHY [None]
